FAERS Safety Report 9693543 (Version 1)
Quarter: 2013Q4

REPORT INFORMATION
  Report Type: Other
  Country: DE (occurrence: DE)
  Receive Date: 20131118
  Receipt Date: 20131118
  Transmission Date: 20140711
  Serious: Yes (Congenital Anomaly)
  Sender: FDA-Public Use
  Company Number: DE-NOVEN-13DE008181

PATIENT
  Age: 1 Day
  Sex: Male
  Weight: 4.04 kg

DRUGS (3)
  1. PAROXETINE [Suspect]
     Indication: ANXIETY DISORDER
     Dosage: 20 MG, QD FIRST TRIMESTER
     Route: 064
     Dates: start: 20090105, end: 20090415
  2. OLANZAPINE [Concomitant]
     Indication: PSYCHOTIC DISORDER
     Dosage: 7.5 MG, QD FIRST TRIMESTER
     Route: 064
     Dates: start: 20081031, end: 20081218
  3. THYRONAJOD [Concomitant]
     Indication: PRODUCT USED FOR UNKNOWN INDICATION

REACTIONS (2)
  - Talipes [Not Recovered/Not Resolved]
  - Foetal exposure during pregnancy [Recovered/Resolved]
